FAERS Safety Report 8248954-X (Version None)
Quarter: 2012Q2

REPORT INFORMATION
  Report Type: 
  Country: None (occurrence: None)
  Receive Date: 20120402
  Receipt Date: 20120329
  Transmission Date: 20120825
  Serious: Yes (Death)
  Sender: FDA-Public Use
  Company Number: US-BRISTOL-MYERS SQUIBB COMPANY-16487571

PATIENT
  Age: 76 Year
  Sex: Male

DRUGS (1)
  1. YERVOY [Suspect]
     Dosage: HAD 2 TREATMENTS, SCHEDULED FOR 3RD TREATMENT ON MORNING OF DEATH

REACTIONS (1)
  - DEATH [None]
